FAERS Safety Report 22991122 (Version 2)
Quarter: 2023Q4

REPORT INFORMATION
  Report Type: Report from Study
  Country: CO (occurrence: CO)
  Receive Date: 20230927
  Receipt Date: 20231101
  Transmission Date: 20240110
  Serious: Yes (Other)
  Sender: FDA-Public Use
  Company Number: CO-TAKEDA-2023TUS014448

PATIENT
  Sex: Female
  Weight: 64 kg

DRUGS (1)
  1. VEDOLIZUMAB [Suspect]
     Active Substance: VEDOLIZUMAB
     Indication: Crohn^s disease
     Dosage: 300 MILLIGRAM
     Route: 042
     Dates: start: 20220915, end: 20230905

REACTIONS (6)
  - Haematochezia [Unknown]
  - Mouth ulceration [Unknown]
  - Weight increased [Unknown]
  - Therapy non-responder [Unknown]
  - Anal fissure [Unknown]
  - Pyrexia [Unknown]
